FAERS Safety Report 24662924 (Version 1)
Quarter: 2024Q4

REPORT INFORMATION
  Report Type: Spontaneous
  Country: CA (occurrence: CA)
  Receive Date: 20241126
  Receipt Date: 20241126
  Transmission Date: 20250115
  Serious: Yes (Death, Other)
  Sender: BRISTOL-MYERS SQUIBB COMPANY
  Company Number: CA-BRISTOL-MYERS SQUIBB COMPANY-2024-183693

PATIENT
  Sex: Female

DRUGS (180)
  1. ORENCIA [Suspect]
     Active Substance: ABATACEPT
     Indication: Product used for unknown indication
     Route: 042
  2. ORENCIA [Suspect]
     Active Substance: ABATACEPT
     Route: 042
  3. ORENCIA [Suspect]
     Active Substance: ABATACEPT
     Route: 042
  4. ORENCIA [Suspect]
     Active Substance: ABATACEPT
     Indication: Product used for unknown indication
     Route: 058
  5. ORENCIA [Suspect]
     Active Substance: ABATACEPT
     Route: 058
  6. ORENCIA [Suspect]
     Active Substance: ABATACEPT
     Route: 058
  7. ORENCIA [Suspect]
     Active Substance: ABATACEPT
     Route: 058
  8. ORENCIA [Suspect]
     Active Substance: ABATACEPT
     Indication: Product used for unknown indication
  9. ORENCIA [Suspect]
     Active Substance: ABATACEPT
     Route: 053
  10. ORENCIA [Suspect]
     Active Substance: ABATACEPT
  11. ORENCIA [Suspect]
     Active Substance: ABATACEPT
  12. TRIAMCINOLONE ACETONIDE [Suspect]
     Active Substance: TRIAMCINOLONE ACETONIDE
     Indication: Product used for unknown indication
     Route: 014
  13. ACETAMINOPHEN [Concomitant]
     Active Substance: ACETAMINOPHEN
     Indication: Product used for unknown indication
  14. ACETAMINOPHEN [Concomitant]
     Active Substance: ACETAMINOPHEN
  15. ADALIMUMAB [Concomitant]
     Active Substance: ADALIMUMAB
     Indication: Product used for unknown indication
     Route: 048
  16. ADALIMUMAB [Concomitant]
     Active Substance: ADALIMUMAB
     Dosage: SOLUTION SUBCUTANEOUS
     Route: 042
  17. ADALIMUMAB [Concomitant]
     Active Substance: ADALIMUMAB
     Route: 058
  18. ALENDRONATE SODIUM [Concomitant]
     Active Substance: ALENDRONATE SODIUM
     Indication: Product used for unknown indication
  19. ALENDRONIC ACID [Concomitant]
     Active Substance: ALENDRONIC ACID
     Indication: Product used for unknown indication
     Route: 048
  20. ALENDRONIC ACID [Concomitant]
     Active Substance: ALENDRONIC ACID
     Route: 016
  21. PANTOPRAZOLE SODIUM ANHYDROUS [Concomitant]
     Active Substance: PANTOPRAZOLE SODIUM ANHYDROUS
     Indication: Product used for unknown indication
     Route: 016
  22. DICLOFENAC SODIUM [Concomitant]
     Active Substance: DICLOFENAC SODIUM
     Indication: Product used for unknown indication
  23. DICLOFENAC SODIUM [Concomitant]
     Active Substance: DICLOFENAC SODIUM
  24. APREMILAST [Concomitant]
     Active Substance: APREMILAST
     Indication: Product used for unknown indication
  25. AZATHIOPRINE [Concomitant]
     Active Substance: AZATHIOPRINE
     Indication: Product used for unknown indication
  26. BIOFLAVONOIDS [Concomitant]
     Active Substance: BIOFLAVONOIDS
     Indication: Product used for unknown indication
  27. CALCIUM [Concomitant]
     Active Substance: CALCIUM
     Indication: Product used for unknown indication
  28. CALCIUM CARBONATE [Concomitant]
     Active Substance: CALCIUM CARBONATE
     Indication: Product used for unknown indication
     Route: 016
  29. CALCIUM CITRATE [Concomitant]
     Active Substance: CALCIUM CITRATE
     Indication: Product used for unknown indication
  30. CALCIUM GLUBIONATE [Concomitant]
     Active Substance: CALCIUM GLUBIONATE
     Indication: Product used for unknown indication
  31. CELECOXIB [Concomitant]
     Active Substance: CELECOXIB
     Route: 048
  32. CELECOXIB [Concomitant]
     Active Substance: CELECOXIB
     Route: 058
  33. CELECOXIB [Concomitant]
     Active Substance: CELECOXIB
  34. CELECOXIB [Concomitant]
     Active Substance: CELECOXIB
  35. CERTOLIZUMAB PEGOL [Concomitant]
     Active Substance: CERTOLIZUMAB PEGOL
     Indication: Product used for unknown indication
     Route: 058
  36. CETIRIZINE [Concomitant]
     Active Substance: CETIRIZINE HYDROCHLORIDE
     Indication: Product used for unknown indication
     Route: 048
  37. CETIRIZINE [Concomitant]
     Active Substance: CETIRIZINE HYDROCHLORIDE
  38. CETIRIZINE [Concomitant]
     Active Substance: CETIRIZINE HYDROCHLORIDE
  39. CETIRIZINE [Concomitant]
     Active Substance: CETIRIZINE HYDROCHLORIDE
     Route: 048
  40. CHLORHEXIDINE GLUCONATE\ISOPROPYL ALCOHOL [Concomitant]
     Active Substance: CHLORHEXIDINE GLUCONATE\ISOPROPYL ALCOHOL
     Indication: Product used for unknown indication
     Route: 048
  41. CHLORHEXIDINE GLUCONATE\ISOPROPYL ALCOHOL [Concomitant]
     Active Substance: CHLORHEXIDINE GLUCONATE\ISOPROPYL ALCOHOL
  42. CIMZIA [Concomitant]
     Active Substance: CERTOLIZUMAB PEGOL
     Indication: Product used for unknown indication
     Route: 058
  43. CIMZIA [Concomitant]
     Active Substance: CERTOLIZUMAB PEGOL
     Route: 058
  44. CIMZIA [Concomitant]
     Active Substance: CERTOLIZUMAB PEGOL
     Route: 058
  45. CLONIDINE HYDROCHLORIDE [Concomitant]
     Active Substance: CLONIDINE HYDROCHLORIDE
     Indication: Product used for unknown indication
  46. CORTISONE (HYDROCORTISONE) [Concomitant]
     Active Substance: HYDROCORTISONE
     Indication: Product used for unknown indication
     Route: 058
  47. CORTISONE [Concomitant]
     Active Substance: CORTISONE
     Indication: Product used for unknown indication
     Route: 048
  48. CORTISONE ACETATE [Concomitant]
     Active Substance: CORTISONE ACETATE
     Indication: Product used for unknown indication
  49. CORTISONE ACETATE [Concomitant]
     Active Substance: CORTISONE ACETATE
     Route: 003
  50. CHLORHEXIDINE [Concomitant]
     Active Substance: CHLORHEXIDINE
     Indication: Product used for unknown indication
     Route: 002
  51. DESOXIMETASONE [Concomitant]
     Active Substance: DESOXIMETASONE
     Indication: Product used for unknown indication
     Route: 003
  52. DESOXIMETASONE [Concomitant]
     Active Substance: DESOXIMETASONE
     Route: 048
  53. DESOXIMETASONE [Concomitant]
     Active Substance: DESOXIMETASONE
     Route: 003
  54. DICLOFENAC DIETHYLAMINE [Concomitant]
     Active Substance: DICLOFENAC DIETHYLAMINE
     Indication: Product used for unknown indication
  55. DICLOFENAC DIETHYLAMINE [Concomitant]
     Active Substance: DICLOFENAC DIETHYLAMINE
  56. DICLOFENAC POTASSIUM [Concomitant]
     Active Substance: DICLOFENAC POTASSIUM
     Indication: Product used for unknown indication
  57. DICLOFENAC SODIUM [Concomitant]
     Active Substance: DICLOFENAC SODIUM
     Indication: Product used for unknown indication
  58. DICLOFENAC SODIUM [Concomitant]
     Active Substance: DICLOFENAC SODIUM
  59. DICLOFENAC SODIUM [Concomitant]
     Active Substance: DICLOFENAC SODIUM
     Route: 058
  60. DICLOFENAC SODIUM [Concomitant]
     Active Substance: DICLOFENAC SODIUM
  61. DICLOFENAC SODIUM [Concomitant]
     Active Substance: DICLOFENAC SODIUM
  62. DILTIAZEM HYDROCHLORIDE [Concomitant]
     Active Substance: DILTIAZEM HYDROCHLORIDE
     Indication: Product used for unknown indication
     Route: 042
  63. DIPHENHYDRAMINE HYDROCHLORIDE [Concomitant]
     Active Substance: DIPHENHYDRAMINE HYDROCHLORIDE
     Indication: Product used for unknown indication
  64. DOXYCYCLINE HYCLATE [Concomitant]
     Active Substance: DOXYCYCLINE HYCLATE
     Indication: Product used for unknown indication
  65. SULFISOMIDINE [Concomitant]
     Active Substance: SULFISOMIDINE
     Indication: Product used for unknown indication
  66. ENBREL [Concomitant]
     Active Substance: ETANERCEPT
     Indication: Product used for unknown indication
     Route: 058
  67. ENBREL [Concomitant]
     Active Substance: ETANERCEPT
     Route: 058
  68. ENBREL [Concomitant]
     Active Substance: ETANERCEPT
     Route: 058
  69. ENTYVIO [Concomitant]
     Active Substance: VEDOLIZUMAB
     Indication: Product used for unknown indication
  70. ERELZI [Concomitant]
     Active Substance: ETANERCEPT-SZZS
     Route: 058
  71. ERELZI [Concomitant]
     Active Substance: ETANERCEPT-SZZS
     Route: 058
  72. FOLIC ACID [Concomitant]
     Active Substance: FOLIC ACID
     Indication: Product used for unknown indication
  73. FOLIC ACID [Concomitant]
     Active Substance: FOLIC ACID
  74. FOLIC ACID [Concomitant]
     Active Substance: FOLIC ACID
  75. FOLIC ACID [Concomitant]
     Active Substance: FOLIC ACID
  76. FOLIC ACID [Concomitant]
     Active Substance: FOLIC ACID
  77. FOLIC ACID [Concomitant]
     Active Substance: FOLIC ACID
     Route: 049
  78. FOLIC ACID [Concomitant]
     Active Substance: FOLIC ACID
     Route: 048
  79. FOLIC ACID [Concomitant]
     Active Substance: FOLIC ACID
  80. FOLIC ACID [Concomitant]
     Active Substance: FOLIC ACID
     Route: 048
  81. FOLIC ACID [Concomitant]
     Active Substance: FOLIC ACID
     Route: 048
  82. FRAMYCETIN SULFATE [Concomitant]
     Active Substance: FRAMYCETIN SULFATE
     Indication: Product used for unknown indication
  83. GOLIMUMAB [Concomitant]
     Active Substance: GOLIMUMAB
     Indication: Product used for unknown indication
  84. GRAMICIDIN [Concomitant]
     Active Substance: GRAMICIDIN
     Indication: Product used for unknown indication
  85. HUMIRA [Concomitant]
     Active Substance: ADALIMUMAB
     Indication: Product used for unknown indication
     Route: 058
  86. HUMIRA [Concomitant]
     Active Substance: ADALIMUMAB
  87. HUMIRA [Concomitant]
     Active Substance: ADALIMUMAB
     Route: 058
  88. HUMIRA [Concomitant]
     Active Substance: ADALIMUMAB
     Dosage: SOLUTION SUBCUTANEOUS
     Route: 058
  89. HYDROCORTISONE SODIUM SUCCINATE [Concomitant]
     Active Substance: HYDROCORTISONE SODIUM SUCCINATE
     Indication: Product used for unknown indication
     Route: 049
  90. HYDROCORTISONE SODIUM SUCCINATE [Concomitant]
     Active Substance: HYDROCORTISONE SODIUM SUCCINATE
     Route: 048
  91. HYDROXYCHLOROQUINE [Concomitant]
     Active Substance: HYDROXYCHLOROQUINE
     Indication: Product used for unknown indication
     Route: 058
  92. HYDROXYCHLOROQUINE [Concomitant]
     Active Substance: HYDROXYCHLOROQUINE
     Route: 048
  93. HYDROXYCHLOROQUINE [Concomitant]
     Active Substance: HYDROXYCHLOROQUINE
     Route: 048
  94. HYDROXYCHLOROQUINE SULFATE [Concomitant]
     Active Substance: HYDROXYCHLOROQUINE SULFATE
     Indication: Product used for unknown indication
  95. HYDROXYCHLOROQUINE SULFATE [Concomitant]
     Active Substance: HYDROXYCHLOROQUINE SULFATE
     Route: 048
  96. HYDROXYCHLOROQUINE SULFATE [Concomitant]
     Active Substance: HYDROXYCHLOROQUINE SULFATE
  97. HYDROXYCHLOROQUINE SULFATE [Concomitant]
     Active Substance: HYDROXYCHLOROQUINE SULFATE
  98. HYDROXYCHLOROQUINE SULFATE [Concomitant]
     Active Substance: HYDROXYCHLOROQUINE SULFATE
     Route: 048
  99. HYDROXYCHLOROQUINE SULFATE [Concomitant]
     Active Substance: HYDROXYCHLOROQUINE SULFATE
     Route: 049
  100. HYDROXYCHLOROQUINE SULFATE [Concomitant]
     Active Substance: HYDROXYCHLOROQUINE SULFATE
     Route: 048
  101. INFLIXIMAB [Concomitant]
     Active Substance: INFLIXIMAB
     Indication: Product used for unknown indication
     Route: 042
  102. INFLIXIMAB [Concomitant]
     Active Substance: INFLIXIMAB
  103. ISOPROPYL ALCOHOL [Concomitant]
     Active Substance: ISOPROPYL ALCOHOL
     Indication: Product used for unknown indication
     Dosage: LIQUID TOPICAL
     Route: 048
  104. LYRICA [Concomitant]
     Active Substance: PREGABALIN
     Indication: Product used for unknown indication
  105. MESALAMINE [Concomitant]
     Active Substance: MESALAMINE
     Indication: Product used for unknown indication
  106. METHOTREXATE [Concomitant]
     Active Substance: METHOTREXATE
     Indication: Product used for unknown indication
     Route: 048
  107. METHOTREXATE [Concomitant]
     Active Substance: METHOTREXATE
     Route: 048
  108. METHOTREXATE [Concomitant]
     Active Substance: METHOTREXATE
     Route: 048
  109. METHOTREXATE [Concomitant]
     Active Substance: METHOTREXATE
     Route: 058
  110. METHOTREXATE [Concomitant]
     Active Substance: METHOTREXATE
     Route: 016
  111. METHOTREXATE [Concomitant]
     Active Substance: METHOTREXATE
     Route: 048
  112. METHOTREXATE [Concomitant]
     Active Substance: METHOTREXATE
  113. METHOTREXATE [Concomitant]
     Active Substance: METHOTREXATE
     Route: 048
  114. METHOTREXATE [Concomitant]
     Active Substance: METHOTREXATE
     Route: 058
  115. METHOTREXATE [Concomitant]
     Active Substance: METHOTREXATE
     Route: 013
  116. METHOTREXATE [Concomitant]
     Active Substance: METHOTREXATE
     Route: 048
  117. METHOTREXATE [Concomitant]
     Active Substance: METHOTREXATE
  118. METHOTREXATE [Concomitant]
     Active Substance: METHOTREXATE
     Route: 048
  119. METHOTREXATE [Concomitant]
     Active Substance: METHOTREXATE
     Route: 048
  120. METHOTREXATE [Concomitant]
     Active Substance: METHOTREXATE
     Route: 013
  121. METHYLPREDNISOLONE SODIUM SUCCINATE [Concomitant]
     Active Substance: METHYLPREDNISOLONE SODIUM SUCCINATE
     Indication: Product used for unknown indication
     Route: 048
  122. MORPHINE SULFATE [Concomitant]
     Active Substance: MORPHINE SULFATE
     Indication: Product used for unknown indication
  123. MYCOPHENOLATE MOFETIL [Concomitant]
     Active Substance: MYCOPHENOLATE MOFETIL
     Indication: Product used for unknown indication
  124. NAPROXEN SODIUM [Concomitant]
     Active Substance: NAPROXEN SODIUM
     Indication: Product used for unknown indication
  125. NITROFURAZONE [Concomitant]
     Active Substance: NITROFURAZONE
     Indication: Product used for unknown indication
     Route: 048
  126. NITROFURAZONE [Concomitant]
     Active Substance: NITROFURAZONE
     Route: 048
  127. OTEZLA [Concomitant]
     Active Substance: APREMILAST
     Indication: Product used for unknown indication
     Route: 048
  128. OTEZLA [Concomitant]
     Active Substance: APREMILAST
     Route: 048
  129. OTEZLA [Concomitant]
     Active Substance: APREMILAST
  130. OXYCODONE [Concomitant]
     Active Substance: OXYCODONE
     Indication: Product used for unknown indication
  131. OXYCODONE [Concomitant]
     Active Substance: OXYCODONE
  132. OXYCODONE TEREPHTHALATE [Concomitant]
     Active Substance: OXYCODONE TEREPHTHALATE
     Indication: Product used for unknown indication
  133. PARA-AMINOSALICYLIC ACID [Concomitant]
     Active Substance: AMINOSALICYLIC ACID
     Indication: Product used for unknown indication
  134. PHTHALYLSULFATHIAZOLE [Concomitant]
     Active Substance: PHTHALYLSULFATHIAZOLE
     Indication: Product used for unknown indication
     Route: 048
  135. PHTHALYLSULFATHIAZOLE [Concomitant]
     Active Substance: PHTHALYLSULFATHIAZOLE
     Route: 058
  136. PHTHALYLSULFATHIAZOLE [Concomitant]
     Active Substance: PHTHALYLSULFATHIAZOLE
     Route: 048
  137. PHTHALYLSULFATHIAZOLE [Concomitant]
     Active Substance: PHTHALYLSULFATHIAZOLE
  138. PHTHALYLSULFATHIAZOLE [Concomitant]
     Active Substance: PHTHALYLSULFATHIAZOLE
  139. PHTHALYLSULFATHIAZOLE [Concomitant]
     Active Substance: PHTHALYLSULFATHIAZOLE
     Route: 016
  140. PREDNISONE [Concomitant]
     Active Substance: PREDNISONE
     Indication: Product used for unknown indication
     Route: 048
  141. PREDNISONE [Concomitant]
     Active Substance: PREDNISONE
     Route: 048
  142. PREDNISONE [Concomitant]
     Active Substance: PREDNISONE
     Route: 048
  143. PREDNISONE [Concomitant]
     Active Substance: PREDNISONE
     Route: 048
  144. PSEUDOEPHEDRINE HYDROCHLORIDE [Concomitant]
     Active Substance: PSEUDOEPHEDRINE HYDROCHLORIDE
     Indication: Product used for unknown indication
  145. QUETIAPINE FUMARATE [Concomitant]
     Active Substance: QUETIAPINE FUMARATE
     Indication: Product used for unknown indication
  146. SALICYLIC ACID [Concomitant]
     Active Substance: SALICYLIC ACID
     Indication: Product used for unknown indication
  147. SODIUM FLUORIDE [Concomitant]
     Active Substance: SODIUM FLUORIDE
     Indication: Product used for unknown indication
  148. SULFAMETHOXAZOLE\TRIMETHOPRIM [Concomitant]
     Active Substance: SULFAMETHOXAZOLE\TRIMETHOPRIM
     Indication: Product used for unknown indication
     Route: 067
  149. SULFASALAZINE [Concomitant]
     Active Substance: SULFASALAZINE
     Indication: Product used for unknown indication
     Route: 058
  150. SULFASALAZINE [Concomitant]
     Active Substance: SULFASALAZINE
     Route: 058
  151. SULFASALAZINE [Concomitant]
     Active Substance: SULFASALAZINE
     Route: 058
  152. SULFASALAZINE [Concomitant]
     Active Substance: SULFASALAZINE
     Route: 058
  153. SULFASALAZINE [Concomitant]
     Active Substance: SULFASALAZINE
     Route: 048
  154. SULFASALAZINE [Concomitant]
     Active Substance: SULFASALAZINE
     Route: 058
  155. SULFASALAZINE [Concomitant]
     Active Substance: SULFASALAZINE
     Route: 058
  156. THYMOL [Concomitant]
     Active Substance: THYMOL
     Indication: Product used for unknown indication
     Route: 048
  157. THYMOL [Concomitant]
     Active Substance: THYMOL
     Route: 048
  158. TOCILIZUMAB [Concomitant]
     Active Substance: TOCILIZUMAB
     Indication: Product used for unknown indication
     Route: 042
  159. TOCILIZUMAB [Concomitant]
     Active Substance: TOCILIZUMAB
     Route: 058
  160. TOCILIZUMAB [Concomitant]
     Active Substance: TOCILIZUMAB
     Route: 042
  161. TOCILIZUMAB [Concomitant]
     Active Substance: TOCILIZUMAB
     Route: 042
  162. TOCILIZUMAB [Concomitant]
     Active Substance: TOCILIZUMAB
     Route: 042
  163. TOCILIZUMAB [Concomitant]
     Active Substance: TOCILIZUMAB
     Route: 058
  164. TOCILIZUMAB [Concomitant]
     Active Substance: TOCILIZUMAB
     Route: 042
  165. TOCILIZUMAB [Concomitant]
     Active Substance: TOCILIZUMAB
     Route: 058
  166. TOCILIZUMAB [Concomitant]
     Active Substance: TOCILIZUMAB
  167. TOCILIZUMAB [Concomitant]
     Active Substance: TOCILIZUMAB
     Route: 058
  168. TOCILIZUMAB [Concomitant]
     Active Substance: TOCILIZUMAB
     Route: 048
  169. TOCILIZUMAB [Concomitant]
     Active Substance: TOCILIZUMAB
     Route: 016
  170. TOFACITINIB CITRATE [Concomitant]
     Active Substance: TOFACITINIB CITRATE
     Indication: Product used for unknown indication
  171. TRAMADOL HYDROCHLORIDE [Concomitant]
     Active Substance: TRAMADOL HYDROCHLORIDE
     Indication: Product used for unknown indication
  172. TRICLOSAN [Concomitant]
     Active Substance: TRICLOSAN
     Indication: Product used for unknown indication
  173. TYROTHRICIN [Concomitant]
     Active Substance: TYROTHRICIN
     Indication: Product used for unknown indication
     Route: 048
  174. TYROTHRICIN [Concomitant]
     Active Substance: TYROTHRICIN
     Route: 048
  175. USTEKINUMAB [Concomitant]
     Active Substance: USTEKINUMAB
     Indication: Product used for unknown indication
     Route: 042
  176. VITAMIN D3 [Concomitant]
     Active Substance: CHOLECALCIFEROL
     Indication: Product used for unknown indication
     Route: 058
  177. VITAMIN D3 [Concomitant]
     Active Substance: CHOLECALCIFEROL
     Route: 016
  178. VITAMIN D3 [Concomitant]
     Active Substance: CHOLECALCIFEROL
  179. XELJANZ [Concomitant]
     Active Substance: TOFACITINIB CITRATE
     Indication: Product used for unknown indication
     Route: 048
  180. XELJANZ [Concomitant]
     Active Substance: TOFACITINIB CITRATE

REACTIONS (1)
  - Death [Fatal]
